FAERS Safety Report 8827532 (Version 3)
Quarter: 2012Q4

REPORT INFORMATION
  Report Type: 
  Country: US (occurrence: US)
  Receive Date: 20121005
  Receipt Date: 20121129
  Transmission Date: 20130627
  Serious: Yes (Other)
  Sender: FDA-Public Use
  Company Number: US-BAYER-2012-102538

PATIENT
  Age: 40 Year
  Sex: Female
  Weight: 90.7 kg

DRUGS (3)
  1. MIRENA [Suspect]
     Indication: MENORRHAGIA
     Dosage: 20 mcg/24hr, CONT
     Route: 015
     Dates: start: 20120214, end: 20121019
  2. MIRENA [Suspect]
     Indication: IRREGULAR MENSTRUATION
  3. MIRENA [Suspect]
     Indication: CONTRACEPTION

REACTIONS (7)
  - Vaginal haemorrhage [None]
  - Vaginal discharge [None]
  - Vaginal discharge [None]
  - Vaginal haemorrhage [Recovered/Resolved]
  - Device related infection [None]
  - White blood cell count increased [None]
  - Vaginal infection [None]
